FAERS Safety Report 23345411 (Version 2)
Quarter: 2024Q1

REPORT INFORMATION
  Report Type: Spontaneous
  Country: ES (occurrence: ES)
  Receive Date: 20231228
  Receipt Date: 20240212
  Transmission Date: 20240409
  Serious: Yes (Hospitalization)
  Sender: FDA-Public Use
  Company Number: None

PATIENT
  Age: 77 Year
  Sex: Female

DRUGS (10)
  1. PAROXETINE [Suspect]
     Active Substance: PAROXETINE
     Indication: Depression
     Dosage: 10.0 MG EVERY 24 HOURS, PAROXETINE (2586A)
     Route: 048
     Dates: start: 20220520, end: 20230625
  2. QUETIAPINE FUMARATE [Concomitant]
     Active Substance: QUETIAPINE FUMARATE
     Indication: Presenile dementia
     Dosage: 150.0 MG EC, 150 MG EFG FILM-COATED TABLETS, 60 TABLETS
     Route: 048
     Dates: start: 20230801
  3. QUETIAPINE [Concomitant]
     Active Substance: QUETIAPINE
     Indication: Presenile dementia
     Dosage: VIATRIS 25 MG EFG FILM-COATED TABLETS, 60 TABLETS
     Route: 048
     Dates: start: 20230901
  4. FERBISOL [Concomitant]
     Indication: Product used for unknown indication
     Dosage: 1.0 CAPS C/24 H AM, 100 MG GASTRORE-RESISTANT CAPSULES, 50 CAPSULES
     Route: 048
     Dates: start: 20231123
  5. LANSOPRAZOLE [Suspect]
     Active Substance: LANSOPRAZOLE
     Indication: Prophylaxis against gastrointestinal ulcer
     Dosage: 30.0 MG EVERY 24 HOURS, LANSOPRAZOLE (2598A)
     Route: 048
     Dates: start: 20211006, end: 20230623
  6. RAMIPRIL [Suspect]
     Active Substance: RAMIPRIL
     Indication: Hypertension
     Dosage: 5.0 MG Q/24H, RAMIPRIL (2497A)
     Route: 048
     Dates: start: 20230109, end: 20230625
  7. ACETYLCYSTEINE [Concomitant]
     Active Substance: ACETYLCYSTEINE
     Indication: Respiratory tract infection
     Dosage: 600.0 MG EVERY 24 HOURS,SANDOZ CARE 600 MG EFFERVESCENT TABLETS, 10 TABLETS
     Route: 048
     Dates: start: 20231124, end: 20231128
  8. AMLODIPINE [Concomitant]
     Active Substance: AMLODIPINE BESYLATE
     Indication: Hypertension
     Dosage: 10.0 MG OF, RATIOPHARM 10 MG EFG TABLETS, 30 TABLETS
     Route: 048
     Dates: start: 20230603
  9. LORAZEPAM [Concomitant]
     Active Substance: LORAZEPAM
     Indication: Presenile dementia
     Dosage: 2.0 MG Q/24 H NOC, ORFIDAL 1 MG TABLETS, 50 TABLETS
     Route: 048
     Dates: start: 20230727
  10. FAMOTIDINE [Concomitant]
     Active Substance: FAMOTIDINE
     Indication: Gastritis
     Dosage: 20.0 MG EC, NORMON 20 MG EFG FILM-COATED TABLETS, 28 TABLETS
     Route: 048
     Dates: start: 20230629

REACTIONS (1)
  - Inappropriate antidiuretic hormone secretion [Recovered/Resolved]

NARRATIVE: CASE EVENT DATE: 20230624
